FAERS Safety Report 26192973 (Version 1)
Quarter: 2025Q4

REPORT INFORMATION
  Report Type: Spontaneous
  Country: US (occurrence: US)
  Receive Date: 20251223
  Receipt Date: 20251223
  Transmission Date: 20260117
  Serious: Yes (Hospitalization, Other)
  Sender: AMGEN
  Company Number: US-AMGEN-USASP2025249559

PATIENT

DRUGS (2)
  1. PREDNISONE [Suspect]
     Active Substance: PREDNISONE
     Indication: Giant cell arteritis
     Dosage: UNK, QD, 20-60 MG TAPERING DOSE
     Route: 065
  2. TOCILIZUMAB [Suspect]
     Active Substance: TOCILIZUMAB
     Indication: Giant cell arteritis
     Dosage: 162 MILLIGRAM, QWK, 12 WEEKS
     Route: 058

REACTIONS (12)
  - Osteoporotic fracture [Unknown]
  - Bursitis [Unknown]
  - Diverticulitis [Unknown]
  - Pathological fracture [Unknown]
  - Giant cell arteritis [Unknown]
  - Insomnia [Unknown]
  - Hyperglycaemia [Unknown]
  - Hypertension [Unknown]
  - Infection [Unknown]
  - Dyspepsia [Unknown]
  - Anxiety [Unknown]
  - Cholecystitis [Unknown]
